FAERS Safety Report 20985536 (Version 4)
Quarter: 2022Q3

REPORT INFORMATION
  Report Type: Spontaneous
  Country: PR (occurrence: US)
  Receive Date: 20220621
  Receipt Date: 20220804
  Transmission Date: 20221027
  Serious: Yes (Other)
  Sender: FDA-Public Use
  Company Number: PR-JNJFOC-20220627097

PATIENT
  Age: 70 Year
  Sex: Female

DRUGS (18)
  1. ELMIRON [Suspect]
     Active Substance: PENTOSAN POLYSULFATE SODIUM
     Indication: Cystitis interstitial
     Route: 048
     Dates: start: 200501, end: 202007
  2. PAROXETINE [Concomitant]
     Active Substance: PAROXETINE
     Dates: start: 2010
  3. METHENAMINE [Concomitant]
     Active Substance: METHENAMINE
     Indication: Antibiotic therapy
     Dates: start: 2010, end: 202007
  4. LEVOTHYROXINE [Concomitant]
     Active Substance: LEVOTHYROXINE
     Indication: Hypothyroidism
     Dates: start: 201405
  5. ESTRACE [Concomitant]
     Active Substance: ESTRADIOL
     Dates: start: 201405, end: 201812
  6. ESTRACE [Concomitant]
     Active Substance: ESTRADIOL
     Dates: start: 201903, end: 201903
  7. TRAMADOL [Concomitant]
     Active Substance: TRAMADOL
     Indication: Pain management
     Dates: start: 201404, end: 201404
  8. TRAMADOL [Concomitant]
     Active Substance: TRAMADOL
     Dates: start: 201405
  9. VESICARE [Concomitant]
     Active Substance: SOLIFENACIN SUCCINATE
     Indication: Bladder spasm
     Dates: start: 201702, end: 202007
  10. LISINOPRIL [Concomitant]
     Active Substance: LISINOPRIL
     Indication: Angiotensin converting enzyme
     Dates: start: 2014
  11. BUTRANS [Concomitant]
     Active Substance: BUPRENORPHINE
     Indication: Pain management
     Dates: start: 201012, end: 201404
  12. BUTRANS [Concomitant]
     Active Substance: BUPRENORPHINE
     Dates: start: 201405, end: 202007
  13. GABAPENTIN [Concomitant]
     Active Substance: GABAPENTIN
     Indication: Pain management
     Dates: start: 2014
  14. AMLODIPINE [Concomitant]
     Active Substance: AMLODIPINE BESYLATE
     Dates: start: 2014
  15. METHOCARBAMOL [Concomitant]
     Active Substance: METHOCARBAMOL
     Indication: Muscle relaxant therapy
     Dates: start: 2014
  16. ESTRADIOL [Concomitant]
     Active Substance: ESTRADIOL
     Indication: Hormone therapy
     Dates: start: 2014
  17. TAMSULOSIN [Concomitant]
     Active Substance: TAMSULOSIN
     Indication: Urinary retention
     Dates: start: 2014
  18. MYRBETRIQ [Concomitant]
     Active Substance: MIRABEGRON
     Indication: Hypertonic bladder
     Dates: start: 2014

REACTIONS (3)
  - Dry age-related macular degeneration [Not Recovered/Not Resolved]
  - Retinal dystrophy [Not Recovered/Not Resolved]
  - Retinal pigmentation [Not Recovered/Not Resolved]

NARRATIVE: CASE EVENT DATE: 20170101
